FAERS Safety Report 6294640-5 (Version None)
Quarter: 2009Q3

REPORT INFORMATION
  Report Type: 
  Country: None (occurrence: None)
  Receive Date: 20090731
  Receipt Date: 20090731
  Transmission Date: 20100115
  Serious: Yes (Death, Hospitalization)
  Sender: FDA-Public Use
  Company Number: None

PATIENT
  Age: 78 Year
  Sex: Female
  Weight: 92.9874 kg

DRUGS (2)
  1. PROPOFOL [Suspect]
     Indication: AORTIC VALVE REPLACEMENT
     Dosage: IV DRIP IV DRIP
     Route: 041
     Dates: start: 20090304, end: 20090401
  2. PROPOFOL [Suspect]
     Indication: MECHANICAL VENTILATION
     Dosage: IV DRIP IV DRIP
     Route: 041
     Dates: start: 20090304, end: 20090401

REACTIONS (4)
  - COAGULOPATHY [None]
  - POST PROCEDURAL COMPLICATION [None]
  - PYREXIA [None]
  - RESPIRATORY DISTRESS [None]
